FAERS Safety Report 7421552-3 (Version None)
Quarter: 2011Q2

REPORT INFORMATION
  Report Type: 
  Country: None (occurrence: None)
  Receive Date: 20110418
  Receipt Date: 20110404
  Transmission Date: 20111010
  Serious: Yes (Death)
  Sender: FDA-Public Use
  Company Number: US-CELGENEUS-163-21880-11032786

PATIENT
  Sex: Male

DRUGS (3)
  1. DECADRON [Concomitant]
     Dosage: 40 MILLIGRAM
     Route: 048
     Dates: start: 20100901, end: 20110301
  2. REVLIMID [Suspect]
     Dosage: 25 MILLIGRAM
     Route: 048
     Dates: start: 20100901, end: 20110301
  3. REVLIMID [Suspect]
     Indication: MULTIPLE MYELOMA
     Dosage: 25 MILLIGRAM
     Route: 048
     Dates: start: 20090601, end: 20100310

REACTIONS (2)
  - ASTHENIA [None]
  - PNEUMONIA RESPIRATORY SYNCYTIAL VIRAL [None]
